FAERS Safety Report 13616245 (Version 2)
Quarter: 2017Q3

REPORT INFORMATION
  Report Type: Report from Study
  Country: None (occurrence: CH)
  Receive Date: 20170606
  Receipt Date: 20170704
  Transmission Date: 20171127
  Serious: Yes (Death)
  Sender: FDA-Public Use
  Company Number: CH-ABBVIE-17K-151-1998399-00

PATIENT
  Sex: Female

DRUGS (1)
  1. DUODOPA [Suspect]
     Active Substance: CARBIDOPA\LEVODOPA
     Indication: PARKINSON^S DISEASE
     Dosage: MD 3.0ML, CRD 2.6ML/H, CRN 2.4ML/H, ED 1.0ML, 24H THERAPY
     Route: 050
     Dates: start: 20170117, end: 2017

REACTIONS (2)
  - General physical health deterioration [Fatal]
  - Multimorbidity [Fatal]

NARRATIVE: CASE EVENT DATE: 2017
